FAERS Safety Report 9240616 (Version 1)
Quarter: 2013Q1

REPORT INFORMATION
  Report Type: Spontaneous
  Country: US (occurrence: None)
  Receive Date: 20121120
  Receipt Date: 20121120
  Transmission Date: 20140127
  Serious: No
  Sender: FDA-Public Use
  Company Number: 1000037777

PATIENT
  Age: 65 Year
  Sex: 0

DRUGS (4)
  1. VIIBRYD (VILAZODONE) (20 MILLIGRAM, TABLETS) [Suspect]
     Indication: ANXIETY
     Dosage: 20 ,G (20 MG, 1 IN 1 D), ORAL
     Route: 048
     Dates: start: 2011, end: 201208
  2. VIIBRYD (VILAZODONE) (20 MILLIGRAM, TABLETS) [Suspect]
     Indication: DEPRESSION
     Dosage: 20 ,G (20 MG, 1 IN 1 D), ORAL
     Route: 048
     Dates: start: 2011, end: 201208
  3. XANAX (ALPRAZOLAM) [Suspect]
     Dosage: 0.5 MG TID (0.5 MG, 3 IN 1 D)
     Route: 048
     Dates: end: 20120809
  4. KLONOPIN [Concomitant]

REACTIONS (2)
  - Burning sensation [None]
  - Alopecia [None]
